FAERS Safety Report 8624198-4 (Version None)
Quarter: 2012Q3

REPORT INFORMATION
  Report Type: 
  Country: None (occurrence: None)
  Receive Date: 20120827
  Receipt Date: 20120611
  Transmission Date: 20120928
  Serious: No
  Sender: FDA-Public Use
  Company Number: US-VERTEX PHARMACEUTICALS INC.-AE-2012-008755

PATIENT
  Age: 14 Year
  Sex: Female

DRUGS (3)
  1. VORICONAZOLE [Concomitant]
  2. RIFAMPIN [Concomitant]
  3. KALYDECO [Suspect]
     Indication: CYSTIC FIBROSIS
     Route: 048

REACTIONS (2)
  - DRUG INTERACTION [None]
  - DRUG INEFFECTIVE [None]
